FAERS Safety Report 9184157 (Version 2)
Quarter: 2013Q4

REPORT INFORMATION
  Report Type: Spontaneous
  Country: US (occurrence: US)
  Receive Date: 20121031
  Receipt Date: 20131101
  Transmission Date: 20140711
  Serious: No
  Sender: FDA-Public Use
  Company Number: US-009507513-1210USA010949

PATIENT
  Sex: Female

DRUGS (4)
  1. REBETOL [Suspect]
     Indication: HEPATITIS C
     Dosage: UNK
     Route: 048
     Dates: start: 19990205, end: 20000204
  2. REBETOL [Suspect]
     Dosage: UNK
     Route: 048
     Dates: start: 20121005
  3. PEGASYS [Suspect]
     Indication: HEPATITIS C
     Dosage: UNK
     Dates: start: 20121005
  4. INTERFERON (UNSPECIFIED) [Suspect]
     Dosage: 3 DF, QW
     Dates: start: 19990205, end: 20000204

REACTIONS (9)
  - Intervertebral disc protrusion [Unknown]
  - Overweight [Unknown]
  - Adverse event [Unknown]
  - Weight decreased [Unknown]
  - White blood cell count decreased [Unknown]
  - Weight decreased [Unknown]
  - Diabetes mellitus [Unknown]
  - Arthralgia [Unknown]
  - Back pain [Unknown]
